FAERS Safety Report 8009464-8 (Version None)
Quarter: 2011Q4

REPORT INFORMATION
  Report Type: 
  Country: None (occurrence: None)
  Receive Date: 20111227
  Receipt Date: 20111223
  Transmission Date: 20120403
  Serious: Yes (Death, Hospitalization)
  Sender: FDA-Public Use
  Company Number: TN-SANOFI-AVENTIS-2011SA084442

PATIENT
  Age: 70 Year
  Sex: Male

DRUGS (12)
  1. PLAVIX [Suspect]
     Route: 048
     Dates: start: 20110507, end: 20111108
  2. ASPIRIN [Concomitant]
     Route: 048
     Dates: start: 20110606, end: 20111108
  3. POTASSIUM CHLORIDE [Concomitant]
     Route: 048
     Dates: start: 20110606, end: 20111108
  4. NOVOLOG MIX 70/30 [Concomitant]
     Route: 058
     Dates: start: 20110606, end: 20111108
  5. GLUCOPHAGE [Concomitant]
     Route: 048
     Dates: end: 20111108
  6. ALDACTONE [Concomitant]
     Route: 048
     Dates: start: 20110606, end: 20111108
  7. CAPTOPRIL [Concomitant]
     Route: 048
     Dates: start: 20110606, end: 20111108
  8. ROSUVASTATIN CALCIUM [Concomitant]
     Route: 048
     Dates: start: 20110606, end: 20111108
  9. PLAVIX [Suspect]
     Indication: STENT PLACEMENT
     Route: 048
     Dates: start: 20110507, end: 20111108
  10. CORDARONE [Concomitant]
     Route: 048
     Dates: start: 20110606, end: 20111108
  11. HYPOTEN [Concomitant]
     Route: 048
     Dates: end: 20111108
  12. AMARYL [Concomitant]
     Route: 048
     Dates: end: 20111108

REACTIONS (2)
  - CARDIAC FAILURE [None]
  - MYOCARDIAL INFARCTION [None]
